FAERS Safety Report 21714677 (Version 1)
Quarter: 2022Q4

REPORT INFORMATION
  Report Type: Spontaneous
  Country: US (occurrence: US)
  Receive Date: 20221212
  Receipt Date: 20221212
  Transmission Date: 20230112
  Serious: Yes (Other)
  Sender: FDA-Public Use
  Company Number: US-BAYER-2022P026465

PATIENT
  Age: 74 Year
  Sex: Female
  Weight: 90.718 kg

DRUGS (5)
  1. ADEMPAS [Interacting]
     Active Substance: RIOCIGUAT
     Indication: Product used for unknown indication
     Dosage: UNK
  2. REMODULIN [Suspect]
     Active Substance: TREPROSTINIL
     Indication: Pulmonary arterial hypertension
     Dosage: UNK
     Route: 042
  3. TADALAFIL [Interacting]
     Active Substance: TADALAFIL
     Indication: Product used for unknown indication
     Dosage: UNK
  4. ELIQUIS [Concomitant]
     Active Substance: APIXABAN
  5. AMBRISENTAN [Concomitant]
     Active Substance: AMBRISENTAN

REACTIONS (7)
  - Atrial flutter [None]
  - Dyspnoea [None]
  - Fluid retention [None]
  - Heart rate increased [None]
  - Arrhythmia [None]
  - Contraindicated product administered [None]
  - Labelled drug-drug interaction medication error [None]
